FAERS Safety Report 7910282-7 (Version None)
Quarter: 2011Q4

REPORT INFORMATION
  Report Type: 
  Country: None (occurrence: None)
  Receive Date: 20111111
  Receipt Date: 20111107
  Transmission Date: 20120403
  Serious: Yes (Hospitalization)
  Sender: FDA-Public Use
  Company Number: GB-JNJFOC-20110504067

PATIENT
  Age: 50 Year
  Sex: Female
  Weight: 90.1 kg

DRUGS (6)
  1. CHLORAMPHENICOL [Concomitant]
     Route: 047
  2. CELEBREX [Concomitant]
     Route: 048
  3. RAMIPRIL [Concomitant]
     Route: 048
  4. GOLIMUMAB [Suspect]
     Indication: RHEUMATOID ARTHRITIS
     Route: 058
  5. ACETAMINOPHEN AND CODEINE PHOSPHATE [Concomitant]
     Route: 048
  6. LEFLUNOMIDE [Concomitant]
     Indication: RHEUMATOID ARTHRITIS
     Route: 048
     Dates: start: 20100329

REACTIONS (1)
  - SYNCOPE [None]
